FAERS Safety Report 16918369 (Version 1)
Quarter: 2019Q4

REPORT INFORMATION
  Report Type: Spontaneous
  Country: FR (occurrence: FR)
  Receive Date: 20191015
  Receipt Date: 20191015
  Transmission Date: 20200122
  Serious: Yes (Hospitalization, Other)
  Sender: FDA-Public Use
  Company Number: FR-PFIZER INC-2019435654

PATIENT
  Age: 74 Year
  Sex: Male

DRUGS (2)
  1. TAHOR [Suspect]
     Active Substance: ATORVASTATIN CALCIUM
     Indication: MYOCARDIAL INFARCTION
     Dosage: 80 MG, 1X/DAY
     Route: 048
     Dates: end: 20190827
  2. IZALGI [Suspect]
     Active Substance: ACETAMINOPHEN\OPIUM
     Indication: ANALGESIC INTERVENTION SUPPORTIVE THERAPY
     Dosage: 4 DF, 1X/DAY (500 MG/25 MG)
     Route: 048
     Dates: start: 20190820, end: 20190825

REACTIONS (4)
  - Jaundice [Recovering/Resolving]
  - Cholestasis [Recovering/Resolving]
  - Acute hepatic failure [Recovered/Resolved]
  - Hepatocellular injury [Recovering/Resolving]

NARRATIVE: CASE EVENT DATE: 20190825
